FAERS Safety Report 10443834 (Version 2)
Quarter: 2014Q3

REPORT INFORMATION
  Report Type: Spontaneous
  Country: US (occurrence: US)
  Receive Date: 20140910
  Receipt Date: 20140916
  Transmission Date: 20150326
  Serious: Yes (Other)
  Sender: FDA-Public Use
  Company Number: US-RB-068437-14

PATIENT
  Sex: Male

DRUGS (1)
  1. MUCINEX MAXIMUM STRENGTH [Suspect]
     Active Substance: GUAIFENESIN
     Indication: PRODUCT USED FOR UNKNOWN INDICATION
     Dosage: 1 TABLET OCCASIONALLY. TOOK A TOTAL OF 4 TABLETS OVER THE PAST 3 DAYS
     Route: 065

REACTIONS (4)
  - Dysuria [Recovered/Resolved]
  - Urinary retention [Recovered/Resolved]
  - Strangury [Recovered/Resolved]
  - Anuria [Recovered/Resolved]
